FAERS Safety Report 5816067-X (Version None)
Quarter: 2008Q3

REPORT INFORMATION
  Report Type: 
  Country: None (occurrence: None)
  Receive Date: 20080716
  Receipt Date: 20080716
  Transmission Date: 20090109
  Serious: No
  Sender: FDA-Public Use
  Company Number: None

PATIENT
  Age: 63 Year
  Sex: Female
  Weight: 49.4421 kg

DRUGS (1)
  1. PRAVACHOL [Suspect]
     Indication: BLOOD CHOLESTEROL
     Dosage: 20 MG DAILY PO
     Route: 048
     Dates: start: 19930101, end: 20080401

REACTIONS (1)
  - CERVICAL SPINAL STENOSIS [None]
